FAERS Safety Report 8036796-X (Version None)
Quarter: 2012Q1

REPORT INFORMATION
  Report Type: 
  Country: None (occurrence: None)
  Receive Date: 20120111
  Receipt Date: 20111229
  Transmission Date: 20120608
  Serious: Yes (Hospitalization)
  Sender: FDA-Public Use
  Company Number: JP-ROCHE-1017412

PATIENT
  Sex: Female
  Weight: 46.5 kg

DRUGS (3)
  1. COPEGUS [Suspect]
     Indication: HEPATITIS C
     Route: 048
     Dates: start: 20110825, end: 20110920
  2. PEGINTERFERON ALFA-2A [Suspect]
     Indication: HEPATITIS C
     Route: 058
     Dates: start: 20110825, end: 20110916
  3. BLINDED BI 201335 (HCV PROTEASE INHIBITOR) [Suspect]
     Indication: HEPATITIS C
     Dosage: 4 CAPS DAILY ON 1ST DAY THEN 2 CAPS DAILY FROM 2ND DAY
     Route: 048
     Dates: start: 20110825, end: 20110920

REACTIONS (8)
  - PURPURA [None]
  - DRUG ERUPTION [None]
  - PRURITUS [None]
  - BLISTER [None]
  - PYREXIA [None]
  - NAUSEA [None]
  - SCRATCH [None]
  - ERYTHEMA [None]
